FAERS Safety Report 20145246 (Version 2)
Quarter: 2021Q4

REPORT INFORMATION
  Report Type: Spontaneous
  Country: CN (occurrence: None)
  Receive Date: 20211203
  Receipt Date: 20211215
  Transmission Date: 20220303
  Serious: Yes (Other)
  Sender: FDA-Public Use
  Company Number: 2021A846602

PATIENT
  Age: 55 Year
  Sex: Female

DRUGS (8)
  1. TAGRISSO [Interacting]
     Active Substance: OSIMERTINIB
     Indication: Lung neoplasm malignant
     Route: 048
     Dates: start: 20211018, end: 20211028
  2. CEFOTAXIME [Interacting]
     Active Substance: CEFOTAXIME SODIUM
     Route: 065
  3. INTERFERON [Suspect]
     Active Substance: INTERFERON
     Route: 065
  4. RIVAROXABAN [Concomitant]
     Active Substance: RIVAROXABAN
     Indication: Cerebral infarction
     Route: 065
  5. METOPROLOL TARTRATE [Concomitant]
     Active Substance: METOPROLOL TARTRATE
     Route: 065
  6. CITICOLINE SODIUM [Concomitant]
     Active Substance: CITICOLINE SODIUM
     Route: 065
  7. COMPOUND VITAMIN B [Concomitant]
     Route: 065
  8. SODIUM BICARBONATE [Concomitant]
     Active Substance: SODIUM BICARBONATE
     Route: 065

REACTIONS (13)
  - Drug interaction [Unknown]
  - Malignant neoplasm progression [Not Recovered/Not Resolved]
  - Cerebral infarction [Unknown]
  - Hypercoagulation [Unknown]
  - Dysphagia [Unknown]
  - Rash [Recovered/Resolved]
  - Productive cough [Not Recovered/Not Resolved]
  - Gingival bleeding [Not Recovered/Not Resolved]
  - Inflammation [Not Recovered/Not Resolved]
  - Catheter site inflammation [Unknown]
  - Catheter site haemorrhage [Unknown]
  - Drug ineffective [Not Recovered/Not Resolved]
  - Product use issue [Not Recovered/Not Resolved]
